FAERS Safety Report 8633405 (Version 2)
Quarter: 2013Q1

REPORT INFORMATION
  Report Type: Spontaneous
  Country: DK (occurrence: DK)
  Receive Date: 20120625
  Receipt Date: 20130125
  Transmission Date: 20140127
  Serious: Yes (Hospitalization)
  Sender: FDA-Public Use
  Company Number: DK-ASTRAZENECA-2012SE40008

PATIENT
  Age: 62 Year
  Sex: Male

DRUGS (1)
  1. PROPOFOL [Suspect]
     Indication: SURGERY
     Route: 042
     Dates: start: 20120601, end: 20120601

REACTIONS (11)
  - Abdominal pain [Recovered/Resolved]
  - Decreased appetite [Unknown]
  - Dyspepsia [Unknown]
  - Pancreatic cyst [Unknown]
  - Flatulence [Unknown]
  - Abdominal distension [Unknown]
  - Fatigue [Unknown]
  - Oedema [Unknown]
  - Ileus [Unknown]
  - Pyrexia [Recovered/Resolved]
  - Pancreatitis acute [Recovering/Resolving]
